FAERS Safety Report 17867910 (Version 4)
Quarter: 2022Q2

REPORT INFORMATION
  Report Type: Report from Study
  Country: CN (occurrence: None)
  Receive Date: 20200606
  Receipt Date: 20220617
  Transmission Date: 20220721
  Serious: Yes (Hospitalization)
  Sender: FDA-Public Use
  Company Number: CN-ROCHE-2612898

PATIENT
  Age: 62 Year
  Sex: Female
  Weight: 55 kg

DRUGS (14)
  1. PLACEBO [Suspect]
     Active Substance: UNSPECIFIED INGREDIENT
     Indication: Ovarian cancer
     Dosage: ON 24/APR/2020 HAD MOST RECENT DOSE OF BLINDED ATEZOLIZUMAB PRIOR TO ADVERSE EVENT AND SERIOUS ADVER
     Route: 041
     Dates: start: 20181207
  2. PLACEBO [Suspect]
     Active Substance: UNSPECIFIED INGREDIENT
     Indication: Fallopian tube cancer
  3. PLACEBO [Suspect]
     Active Substance: UNSPECIFIED INGREDIENT
     Indication: Peritoneal neoplasm
  4. BEVACIZUMAB [Suspect]
     Active Substance: BEVACIZUMAB
     Indication: Ovarian cancer
     Dosage: DOSE OF LAST BEVACIZUMAB ADMINISTERED PRIOR TO ADVERSE EVENT AND SERIOUS ADVERSE EVENT ONSET WAS 801
     Route: 042
     Dates: start: 20181228
  5. BEVACIZUMAB [Suspect]
     Active Substance: BEVACIZUMAB
     Indication: Fallopian tube cancer
  6. BEVACIZUMAB [Suspect]
     Active Substance: BEVACIZUMAB
     Indication: Peritoneal neoplasm
  7. PACLITAXEL [Suspect]
     Active Substance: PACLITAXEL
     Indication: Ovarian cancer
     Dosage: DOSE OF LAST PACLITAXEL ADMINISTERED PRIOR TO ADVERSE EVENT AND SERIOUS ADVERSE EVENT ONSET WAS 266
     Route: 042
     Dates: start: 20181207
  8. PACLITAXEL [Suspect]
     Active Substance: PACLITAXEL
     Indication: Fallopian tube cancer
  9. PACLITAXEL [Suspect]
     Active Substance: PACLITAXEL
     Indication: Peritoneal neoplasm
  10. CARBOPLATIN [Suspect]
     Active Substance: CARBOPLATIN
     Indication: Ovarian cancer
     Dosage: DOSE OF LAST CARBOPLATIN ADMINISTERED PRIOR TO ADVERSE EVENT AND SERIOUS ADVERSE EVENT ONSET WAS 620
     Route: 042
     Dates: start: 20181207
  11. CARBOPLATIN [Suspect]
     Active Substance: CARBOPLATIN
     Indication: Fallopian tube cancer
  12. CARBOPLATIN [Suspect]
     Active Substance: CARBOPLATIN
     Indication: Peritoneal neoplasm
  13. ATORVASTATIN CALCIUM [Concomitant]
     Active Substance: ATORVASTATIN CALCIUM
     Indication: Hyperlipidaemia
     Dates: start: 20200517, end: 20200517
  14. PERINDOPRIL ERBUMINE [Concomitant]
     Active Substance: PERINDOPRIL ERBUMINE
     Dates: start: 20200517, end: 20200517

REACTIONS (1)
  - Glomerulonephritis chronic [Recovered/Resolved with Sequelae]

NARRATIVE: CASE EVENT DATE: 20200512
